FAERS Safety Report 11855617 (Version 1)
Quarter: 2015Q4

REPORT INFORMATION
  Report Type: Spontaneous
  Country: US (occurrence: US)
  Receive Date: 20151221
  Receipt Date: 20151221
  Transmission Date: 20160305
  Serious: No
  Sender: FDA-Public Use
  Company Number: US-PERRIGO-15US004005

PATIENT
  Age: 51 Year
  Sex: Female
  Weight: 61.22 kg

DRUGS (2)
  1. BACITRACIN OPHTHALMIC USP 500U/G 0S4 [Suspect]
     Active Substance: BACITRACIN
     Indication: SUTURE INSERTION
     Dosage: 1 SMALL APPLICATION TO BOTH EYES, QD
     Route: 047
     Dates: start: 20150409, end: 20150410
  2. ANTIHYPERTENSIVES [Concomitant]
     Active Substance: UNSPECIFIED INGREDIENT
     Indication: HYPERTENSION
     Dosage: UNK
     Route: 065

REACTIONS (4)
  - Eyelid oedema [Recovered/Resolved]
  - Eyelid irritation [Recovered/Resolved]
  - Off label use [Recovered/Resolved]
  - Eyelids pruritus [Recovered/Resolved]

NARRATIVE: CASE EVENT DATE: 20150409
